FAERS Safety Report 15302087 (Version 6)
Quarter: 2019Q4

REPORT INFORMATION
  Report Type: Report from Study
  Country: DE (occurrence: DE)
  Receive Date: 20180821
  Receipt Date: 20191002
  Transmission Date: 20200122
  Serious: Yes (Hospitalization)
  Sender: FDA-Public Use
  Company Number: DE-PFIZER INC-2018331216

PATIENT
  Age: 55 Year
  Sex: Female
  Weight: 71 kg

DRUGS (7)
  1. PANTOPRAZOLE [Suspect]
     Active Substance: PANTOPRAZOLE
     Indication: MYASTHENIC SYNDROME
     Dosage: 20 MG, 1X/DAY
     Route: 065
     Dates: start: 20140502, end: 2014
  2. PREDNISOLON [PREDNISOLONE] [Suspect]
     Active Substance: PREDNISOLONE
     Indication: MYASTHENIC SYNDROME
     Dosage: 40 MG, 1X/DAY
     Route: 065
     Dates: start: 20140502, end: 20140731
  3. FIRDAPSE [Suspect]
     Active Substance: AMIFAMPRIDINE
     Indication: MYASTHENIC SYNDROME
     Dosage: 20 MG, 3X/DAY
     Route: 048
     Dates: start: 20140414
  4. AZATHIOPRINE. [Suspect]
     Active Substance: AZATHIOPRINE
     Dosage: 50 MG, 3X/DAY
     Route: 065
     Dates: start: 20140604
  5. AZATHIOPRINE. [Suspect]
     Active Substance: AZATHIOPRINE
     Indication: MYASTHENIC SYNDROME
     Dosage: 50 MG, 2X/DAY
     Route: 065
     Dates: start: 20140502, end: 20140603
  6. VITAMIN D [Suspect]
     Active Substance: VITAMIN D NOS
     Indication: MYASTHENIC SYNDROME
     Dosage: 10 MG, 1X/DAY
     Route: 065
     Dates: start: 20140502, end: 2014
  7. CALCIUM [Suspect]
     Active Substance: CALCIUM
     Indication: MYASTHENIC SYNDROME
     Dosage: 1 G, 1X/DAY
     Route: 065
     Dates: start: 20140502, end: 2014

REACTIONS (2)
  - Condition aggravated [Recovered/Resolved with Sequelae]
  - Myasthenic syndrome [Recovered/Resolved with Sequelae]

NARRATIVE: CASE EVENT DATE: 20160127
